FAERS Safety Report 4460693-X (Version None)
Quarter: 2004Q3

REPORT INFORMATION
  Report Type: 
  Country: None (occurrence: None)
  Receive Date: 20040928
  Receipt Date: 20040719
  Transmission Date: 20050211
  Serious: No
  Sender: FDA-Public Use
  Company Number: US-GLAXOSMITHKLINE-A0518814A

PATIENT
  Age: 51 Year
  Sex: Female

DRUGS (11)
  1. ADVAIR DISKUS 100/50 [Suspect]
     Indication: ASTHMA
     Dosage: 150MCG TWICE PER DAY
     Route: 055
     Dates: start: 20040101
  2. UNKNOWN MEDICATION [Concomitant]
  3. METHADONE HCL [Concomitant]
  4. CELEBREX [Concomitant]
  5. PREMARIN [Concomitant]
  6. DYAZIDE [Concomitant]
  7. METHOTREXATE [Concomitant]
  8. ALLEGRA [Concomitant]
  9. PAXIL [Concomitant]
  10. ELAVIL [Concomitant]
  11. SKELAXIN [Concomitant]

REACTIONS (2)
  - ASTHMA [None]
  - PHARMACEUTICAL PRODUCT COMPLAINT [None]
